APPROVED DRUG PRODUCT: GABAPENTIN
Active Ingredient: GABAPENTIN
Strength: 800MG
Dosage Form/Route: TABLET;ORAL
Application: A202764 | Product #002
Applicant: INVAGEN PHARMACEUTICALS INC
Approved: Oct 16, 2012 | RLD: No | RS: No | Type: DISCN